FAERS Safety Report 4424190-X (Version None)
Quarter: 2004Q3

REPORT INFORMATION
  Report Type: 
  Country: None (occurrence: None)
  Receive Date: 20040812
  Receipt Date: 20040716
  Transmission Date: 20050211
  Serious: Yes (Hospitalization)
  Sender: FDA-Public Use
  Company Number: 200415405US

PATIENT
  Sex: Female
  Weight: 56 kg

DRUGS (22)
  1. LANTUS [Suspect]
     Indication: DIABETES MELLITUS INSULIN-DEPENDENT
     Dosage: DOSE UNIT: UNITS
     Route: 051
     Dates: start: 20040625
  2. INSULIN PUMP [Concomitant]
     Dosage: DOSE: UNKNOWN
  3. NOVOLOG [Concomitant]
     Dosage: DOSE: UNKNOWN
  4. LORAZEPAM [Concomitant]
  5. FERROUS SULFATE TAB [Concomitant]
  6. ASPIRIN [Concomitant]
  7. ROCALTROL [Concomitant]
  8. ZYPREXA [Concomitant]
  9. AMIODARONE HCL [Concomitant]
  10. COREG [Concomitant]
  11. PLAVIX [Concomitant]
  12. SYNTHROID [Concomitant]
  13. K-DUR 10 [Concomitant]
  14. LASIX [Concomitant]
  15. LIPITOR [Concomitant]
  16. DIAMOX [Concomitant]
  17. EFFEXOR [Concomitant]
  18. MULTIVITAMIN [Concomitant]
  19. STALEVO                                 /USA/ [Concomitant]
  20. ATACAND [Concomitant]
  21. EPOGEN [Concomitant]
     Dosage: DOSE: UNKNOWN
  22. TRAZODONE HCL [Concomitant]

REACTIONS (3)
  - BLOOD PRESSURE DECREASED [None]
  - DEHYDRATION [None]
  - DIARRHOEA [None]
